FAERS Safety Report 18007559 (Version 1)
Quarter: 2020Q3

REPORT INFORMATION
  Report Type: Spontaneous
  Country: GB (occurrence: GB)
  Receive Date: 20200710
  Receipt Date: 20200710
  Transmission Date: 20201103
  Serious: Yes (Hospitalization)
  Sender: FDA-Public Use
  Company Number: GB-DEXPHARM-20200577

PATIENT
  Age: 82 Year
  Sex: Female

DRUGS (12)
  1. TIOTROPIUM [Concomitant]
     Active Substance: TIOTROPIUM
  2. AZITHROMYCIN ANHYDROUS. [Concomitant]
     Active Substance: AZITHROMYCIN ANHYDROUS
  3. MOVICOL [Concomitant]
     Active Substance: POLYETHYLENE GLYCOL 3350\POTASSIUM CHLORIDE\SODIUM BICARBONATE\SODIUM CHLORIDE
  4. MONTELUKAST [Concomitant]
     Active Substance: MONTELUKAST SODIUM
  5. ADCAL?D3 [Concomitant]
     Active Substance: CALCIUM CARBONATE\CHOLECALCIFEROL
  6. SALBUTAMOL [Concomitant]
     Active Substance: ALBUTEROL
  7. MIRTAZAPINE. [Suspect]
     Active Substance: MIRTAZAPINE
     Dates: start: 20191218, end: 20191220
  8. LEVOTHYROXINE. [Concomitant]
     Active Substance: LEVOTHYROXINE
  9. FOSTAIR [Concomitant]
     Active Substance: BECLOMETHASONE\FORMOTEROL
  10. ATORVASTATIN [Concomitant]
     Active Substance: ATORVASTATIN
  11. ALENDRONIC ACID [Concomitant]
     Active Substance: ALENDRONIC ACID
  12. OMEPRAZOLE. [Suspect]
     Active Substance: OMEPRAZOLE
     Dates: start: 20191218, end: 20191220

REACTIONS (2)
  - Drug interaction [Unknown]
  - Hyponatraemia [Unknown]
